FAERS Safety Report 7227143-1 (Version None)
Quarter: 2011Q1

REPORT INFORMATION
  Report Type: 
  Country: None (occurrence: None)
  Receive Date: 20110114
  Receipt Date: 20110113
  Transmission Date: 20110831
  Serious: Yes (Death, Hospitalization, Other)
  Sender: FDA-Public Use
  Company Number: US-CEPHALON-2010006399

PATIENT
  Sex: Female
  Weight: 68 kg

DRUGS (10)
  1. PEPCID [Concomitant]
     Dates: end: 20110105
  2. RITUXAN [Suspect]
     Indication: DIFFUSE LARGE B-CELL LYMPHOMA
     Route: 042
     Dates: start: 20101118, end: 20101118
  3. METFORMIN HCL [Concomitant]
     Dates: end: 20110105
  4. IRON SULFATETHIAMIN COMPOUND TAB [Concomitant]
     Dates: end: 20110105
  5. ZOFRAN [Concomitant]
     Dates: end: 20110105
  6. TREANDA [Suspect]
     Indication: DIFFUSE LARGE B-CELL LYMPHOMA
     Route: 042
     Dates: start: 20101118, end: 20101119
  7. HYDROCODONE [Concomitant]
     Dates: end: 20110105
  8. REGLAN [Concomitant]
  9. ALLOPURINOL [Concomitant]
  10. ACYCLOVIR [Concomitant]

REACTIONS (16)
  - ATELECTASIS [None]
  - SUPRAVENTRICULAR TACHYCARDIA [None]
  - DEHYDRATION [None]
  - VOMITING [None]
  - ADRENAL INSUFFICIENCY [None]
  - DEATH [None]
  - CARDIAC FAILURE CONGESTIVE [None]
  - PLEURAL EFFUSION [None]
  - NAUSEA [None]
  - LIVER FUNCTION TEST ABNORMAL [None]
  - PYREXIA [None]
  - URINARY TRACT INFECTION [None]
  - MICROCYTIC ANAEMIA [None]
  - LEUKOCYTOSIS [None]
  - PNEUMONIA [None]
  - HYPOKALAEMIA [None]
